FAERS Safety Report 9800659 (Version 1)
Quarter: 2014Q1

REPORT INFORMATION
  Report Type: Report from Study
  Country: US (occurrence: US)
  Receive Date: 20140107
  Receipt Date: 20140107
  Transmission Date: 20141002
  Serious: Yes (Death)
  Sender: FDA-Public Use
  Company Number: US-ROCHE-1330066

PATIENT
  Age: 56 Year
  Sex: Female
  Weight: 80.36 kg

DRUGS (10)
  1. AVASTIN [Suspect]
     Indication: COLON CANCER
     Dosage: 5 MG/KG
     Route: 042
     Dates: start: 20110830
  2. OXALIPLATIN [Concomitant]
  3. 5-FU [Concomitant]
  4. CAMPTOSAR [Concomitant]
     Route: 042
  5. ALOXI [Concomitant]
     Route: 042
  6. ATIVAN [Concomitant]
     Route: 042
  7. DECADRON [Concomitant]
     Route: 042
  8. ZOFRAN [Concomitant]
     Route: 042
  9. METHYLPREDNISOLONE [Concomitant]
     Route: 042
  10. DILAUDID [Concomitant]
     Indication: PAIN
     Route: 042
     Dates: start: 20111006

REACTIONS (2)
  - Disease progression [Fatal]
  - Abdominal pain [Unknown]
